FAERS Safety Report 16855015 (Version 1)
Quarter: 2019Q3

REPORT INFORMATION
  Report Type: Spontaneous
  Country: DE (occurrence: DE)
  Receive Date: 20190926
  Receipt Date: 20190926
  Transmission Date: 20191005
  Serious: Yes (Congenital Anomaly, Other)
  Sender: FDA-Public Use
  Company Number: DE-AUROBINDO-AUR-APL-2019-062657

PATIENT
  Sex: Female
  Weight: 3.26 kg

DRUGS (2)
  1. FEMIBION [Concomitant]
     Indication: PROPHYLAXIS OF NEURAL TUBE DEFECT
     Dosage: UNK
     Route: 064
     Dates: start: 20180107, end: 20181009
  2. LEVETIRACETAM. [Suspect]
     Active Substance: LEVETIRACETAM
     Indication: EPILEPSY
     Dosage: 3000 [MG/D (BIS 2000) ]/ UNTIL GW 16: 3000 MG DAILY, THAN REDUCED TO 2000 MG/D
     Route: 064
     Dates: start: 20180107, end: 20181009

REACTIONS (3)
  - Arteriovenous malformation [Not Recovered/Not Resolved]
  - Atrial septal defect [Unknown]
  - Infantile haemangioma [Unknown]
